FAERS Safety Report 12209282 (Version 2)
Quarter: 2016Q2

REPORT INFORMATION
  Report Type: Spontaneous
  Country: US (occurrence: US)
  Receive Date: 20160324
  Receipt Date: 20160412
  Transmission Date: 20160815
  Serious: Yes (Hospitalization)
  Sender: FDA-Public Use
  Company Number: US-UNITED THERPEUTICS-UNT-2016-003979

PATIENT
  Age: 45 Year
  Sex: Female
  Weight: 56.69 kg

DRUGS (4)
  1. REVATIO [Concomitant]
     Active Substance: SILDENAFIL CITRATE
     Indication: PRODUCT USED FOR UNKNOWN INDICATION
  2. OPSUMIT [Concomitant]
     Active Substance: MACITENTAN
     Indication: PRODUCT USED FOR UNKNOWN INDICATION
  3. REMODULIN [Suspect]
     Active Substance: TREPROSTINIL
     Indication: PULMONARY ARTERIAL HYPERTENSION
     Dosage: 0.239 ?G/KG, CONTINUING
     Route: 041
     Dates: start: 20060201
  4. REMODULIN [Suspect]
     Active Substance: TREPROSTINIL
     Dosage: 0.022 ?G/KG, CONTINUING
     Route: 041

REACTIONS (3)
  - Arthritis [Unknown]
  - Jugular vein thrombosis [Unknown]
  - Haemoptysis [Unknown]

NARRATIVE: CASE EVENT DATE: 201603
